FAERS Safety Report 8487425-2 (Version None)
Quarter: 2012Q3

REPORT INFORMATION
  Report Type: 
  Country: None (occurrence: None)
  Receive Date: 20120705
  Receipt Date: 20120626
  Transmission Date: 20120928
  Serious: Yes (Other)
  Sender: FDA-Public Use
  Company Number: BR-ELI_LILLY_AND_COMPANY-BR201206008658

PATIENT
  Sex: Male

DRUGS (4)
  1. ASPIRIN [Concomitant]
     Indication: CARDIAC DISORDER
     Dosage: UNK, UNKNOWN
     Route: 065
  2. SINVASTATINA [Concomitant]
     Indication: BLOOD CHOLESTEROL
     Dosage: UNK, UNKNOWN
     Route: 065
  3. HUMALOG MIX 75/25 [Suspect]
     Dosage: 26 IU, EACH EVENING
     Route: 058
     Dates: start: 20120201
  4. HUMALOG MIX 75/25 [Suspect]
     Indication: DIABETES MELLITUS
     Dosage: 46 IU, EACH MORNING
     Route: 058
     Dates: start: 20120201

REACTIONS (3)
  - BLOOD GLUCOSE INCREASED [None]
  - SYNCOPE [None]
  - BLOOD GLUCOSE DECREASED [None]
